FAERS Safety Report 4489085-4 (Version None)
Quarter: 2004Q4

REPORT INFORMATION
  Report Type: 
  Country: None (occurrence: None)
  Receive Date: 20041029
  Receipt Date: 20040908
  Transmission Date: 20050328
  Serious: Yes (Other)
  Sender: FDA-Public Use
  Company Number: MY-ROCHE-381783

PATIENT
  Age: 21 Year
  Sex: Male

DRUGS (1)
  1. ROCEPHINE [Suspect]
     Indication: LIVER ABSCESS
     Route: 042
     Dates: start: 20040130

REACTIONS (4)
  - CONVULSION [None]
  - DYSPNOEA [None]
  - HYPOXIA [None]
  - SOMNOLENCE [None]
